FAERS Safety Report 25364808 (Version 1)
Quarter: 2025Q2

REPORT INFORMATION
  Report Type: Spontaneous
  Country: CA (occurrence: CA)
  Receive Date: 20250527
  Receipt Date: 20250527
  Transmission Date: 20250716
  Serious: Yes (Hospitalization, Other)
  Sender: MYLAN
  Company Number: CA-MYLANLABS-2025M1044082

PATIENT
  Age: 48 Year
  Sex: Female
  Weight: 102 kg

DRUGS (6)
  1. AMLODIPINE [Suspect]
     Active Substance: AMLODIPINE BESYLATE
     Indication: Product used for unknown indication
  2. NALOXONE [Suspect]
     Active Substance: NALOXONE
     Indication: Vasoplegia syndrome
  3. NALOXONE [Suspect]
     Active Substance: NALOXONE
     Indication: Shock
  4. NALOXONE [Suspect]
     Active Substance: NALOXONE
     Indication: Vasoplegia syndrome
  5. NALOXONE [Suspect]
     Active Substance: NALOXONE
     Indication: Shock
  6. PERINDOPRIL [Suspect]
     Active Substance: PERINDOPRIL
     Indication: Product used for unknown indication

REACTIONS (13)
  - Hypoxia [Recovered/Resolved]
  - Impaired insulin secretion [Recovered/Resolved]
  - Insulin resistance [Recovered/Resolved]
  - Paralysis [Recovered/Resolved]
  - Rebound effect [Recovered/Resolved]
  - Sedation [Recovered/Resolved]
  - Shock [Recovered/Resolved]
  - Toxicity to various agents [Recovered/Resolved]
  - Vasoplegia syndrome [Recovered/Resolved]
  - Hypotension [Recovered/Resolved]
  - Intentional overdose [Recovered/Resolved]
  - Overdose [Recovered/Resolved]
  - Off label use [Recovered/Resolved]
